FAERS Safety Report 13563082 (Version 1)
Quarter: 2017Q2

REPORT INFORMATION
  Report Type: Spontaneous
  Country: US (occurrence: US)
  Receive Date: 20170519
  Receipt Date: 20170519
  Transmission Date: 20170830
  Serious: Yes (Death)
  Sender: FDA-Public Use
  Company Number: US-ASTELLAS-2017US010131

PATIENT
  Sex: Male

DRUGS (1)
  1. XTANDI [Suspect]
     Active Substance: ENZALUTAMIDE
     Indication: PROSTATE CANCER
     Route: 048
     Dates: start: 20170207

REACTIONS (5)
  - Vomiting [Unknown]
  - Dysphagia [Unknown]
  - Product size issue [Unknown]
  - Wrong technique in product usage process [Unknown]
  - Death [Fatal]
